FAERS Safety Report 10994002 (Version 1)
Quarter: 2015Q2

REPORT INFORMATION
  Report Type: Spontaneous
  Country: FR (occurrence: FR)
  Receive Date: 20150407
  Receipt Date: 20150407
  Transmission Date: 20150821
  Serious: Yes (Hospitalization)
  Sender: FDA-Public Use
  Company Number: FR-CELGENE-056-21880-13050961

PATIENT
  Age: 64 Year
  Sex: Male
  Weight: 101 kg

DRUGS (11)
  1. DEXAMETHASONE. [Suspect]
     Active Substance: DEXAMETHASONE
     Route: 048
     Dates: start: 20130327, end: 20130516
  2. REVLIMID [Suspect]
     Active Substance: LENALIDOMIDE
     Indication: PLASMA CELL MYELOMA
     Route: 048
     Dates: start: 20130327, end: 20130328
  3. BLINDED MLN9708 [Suspect]
     Active Substance: IXAZOMIB
     Indication: PLASMA CELL MYELOMA
     Route: 048
     Dates: start: 20130327, end: 20130509
  4. METFORMIN [Concomitant]
     Active Substance: METFORMIN HYDROCHLORIDE
     Indication: DIABETES MELLITUS INADEQUATE CONTROL
     Route: 065
     Dates: start: 20130410
  5. DEXAMETHASONE. [Suspect]
     Active Substance: DEXAMETHASONE
     Indication: PLASMA CELL MYELOMA
     Dosage: EVERY WEDNESDAY
     Route: 048
     Dates: start: 20130327
  6. DEXAMETHASONE. [Suspect]
     Active Substance: DEXAMETHASONE
     Dosage: DOSE REDUCED
     Route: 048
  7. REVLIMID [Suspect]
     Active Substance: LENALIDOMIDE
     Route: 048
     Dates: start: 20130327, end: 20130515
  8. NOVONORM [Concomitant]
     Active Substance: REPAGLINIDE
     Indication: DIABETES MELLITUS
     Route: 065
     Dates: start: 20130410
  9. SEROPLEX [Concomitant]
     Active Substance: ESCITALOPRAM OXALATE
     Indication: DEPRESSION
     Route: 065
  10. EPOETIN ZETA [Concomitant]
     Active Substance: ERYTHROPOIETIN
     Indication: ANAEMIA
     Route: 065
     Dates: start: 20130425
  11. HUMALOG [Concomitant]
     Active Substance: INSULIN LISPRO
     Indication: DIABETES MELLITUS
     Route: 065
     Dates: start: 20130404

REACTIONS (2)
  - Diabetes mellitus [Recovered/Resolved]
  - Diabetes mellitus [Recovered/Resolved]

NARRATIVE: CASE EVENT DATE: 20130328
